FAERS Safety Report 9102746 (Version 1)
Quarter: 2013Q1

REPORT INFORMATION
  Report Type: Spontaneous
  Country: FR (occurrence: FR)
  Receive Date: 20130220
  Receipt Date: 20130220
  Transmission Date: 20140127
  Serious: Yes (Death)
  Sender: FDA-Public Use
  Company Number: FR-B.I. PHARMACEUTICALS,INC./RIDGEFIELD-2013-FF-00418FF

PATIENT
  Age: 82 Year
  Sex: Female

DRUGS (9)
  1. PRADAXA [Suspect]
     Indication: PROPHYLAXIS
     Dosage: 220 MG
     Route: 048
     Dates: end: 20130105
  2. FLUOXETINE [Suspect]
     Dosage: 20 MG
     Route: 048
  3. FUROSEMIDE [Concomitant]
  4. DIFFU K [Concomitant]
     Route: 048
  5. CARDENSIEL [Concomitant]
     Route: 048
  6. RAMIPRIL [Concomitant]
  7. TRINIPATCH [Concomitant]
  8. ZOPICLONE [Concomitant]
  9. IXPRIM [Concomitant]

REACTIONS (4)
  - Haematoma [Fatal]
  - Melaena [Fatal]
  - Intra-abdominal haemorrhage [Fatal]
  - Anaemia [Fatal]
